FAERS Safety Report 17831109 (Version 1)
Quarter: 2020Q2

REPORT INFORMATION
  Report Type: Other
  Country: CN (occurrence: CN)
  Receive Date: 20200527
  Receipt Date: 20200527
  Transmission Date: 20200714
  Serious: Yes (Hospitalization)
  Sender: FDA-Public Use
  Company Number: CN-DEXPHARM-20200456

PATIENT
  Age: 59 Year
  Sex: Female

DRUGS (7)
  1. COLLOIDAL BISMUTH PECTIN [Interacting]
     Active Substance: BISMUTH
     Indication: HELICOBACTER INFECTION
  2. CLARITHROMYCIN. [Interacting]
     Active Substance: CLARITHROMYCIN
     Indication: HELICOBACTER INFECTION
  3. ACARBOSE. [Interacting]
     Active Substance: ACARBOSE
  4. GLICLAZIDE [Interacting]
     Active Substance: GLICLAZIDE
  5. AMOXICILLIN. [Interacting]
     Active Substance: AMOXICILLIN
     Indication: HELICOBACTER INFECTION
  6. OMEPRAZOLE. [Suspect]
     Active Substance: OMEPRAZOLE
     Indication: HELICOBACTER INFECTION
  7. METFORMIN [Interacting]
     Active Substance: METFORMIN HYDROCHLORIDE

REACTIONS (2)
  - Drug interaction [Recovered/Resolved]
  - Hypoglycaemia [Recovered/Resolved]
